FAERS Safety Report 16730809 (Version 3)
Quarter: 2019Q4

REPORT INFORMATION
  Report Type: Spontaneous
  Country: US (occurrence: US)
  Receive Date: 20190822
  Receipt Date: 20191018
  Transmission Date: 20200122
  Serious: No
  Sender: FDA-Public Use
  Company Number: US-SUNOVION-2019SUN003416

PATIENT
  Age: 26 Year
  Sex: Female
  Weight: 74.83 kg

DRUGS (2)
  1. PRAZOSIN. [Concomitant]
     Active Substance: PRAZOSIN
     Indication: NIGHTMARE
  2. LATUDA [Suspect]
     Active Substance: LURASIDONE HYDROCHLORIDE
     Indication: BIPOLAR DISORDER
     Dosage: 40 MG, HS
     Route: 048
     Dates: start: 20190611, end: 20190709

REACTIONS (7)
  - Breast engorgement [Recovered/Resolved]
  - Vitamin D decreased [Unknown]
  - Blood chloride increased [Unknown]
  - Breast discharge [Recovered/Resolved]
  - Mean cell haemoglobin decreased [Unknown]
  - Weight increased [Recovering/Resolving]
  - Platelet count increased [Unknown]

NARRATIVE: CASE EVENT DATE: 20190611
